FAERS Safety Report 7321909-5 (Version None)
Quarter: 2011Q1

REPORT INFORMATION
  Report Type: 
  Country: None (occurrence: None)
  Receive Date: 20110228
  Receipt Date: 20110222
  Transmission Date: 20110831
  Serious: Yes (Hospitalization)
  Sender: FDA-Public Use
  Company Number: PL-ABBOTT-11P-129-0699749-00

PATIENT
  Sex: Male
  Weight: 104 kg

DRUGS (6)
  1. METHYLPREDNISOLONE [Concomitant]
     Indication: PSORIATIC ARTHROPATHY
     Dosage: 4MG DAILY
     Route: 048
     Dates: start: 20100701, end: 20101101
  2. HUMIRA [Suspect]
     Indication: PSORIATIC ARTHROPATHY
     Route: 058
     Dates: start: 20100830, end: 20101125
  3. METHOTREXAT [Concomitant]
     Indication: PSORIATIC ARTHROPATHY
     Route: 048
     Dates: start: 20100701, end: 20101201
  4. METHYLPREDNISOLONE [Concomitant]
     Indication: RHEUMATOID ARTHRITIS
  5. METHOTREXAT [Concomitant]
     Indication: RHEUMATOID ARTHRITIS
  6. HUMIRA [Suspect]
     Indication: RHEUMATOID ARTHRITIS

REACTIONS (6)
  - OTITIS MEDIA [None]
  - LYMPH NODE PAIN [None]
  - LYMPHADENOPATHY [None]
  - PHARYNGEAL ERYTHEMA [None]
  - HEARING IMPAIRED [None]
  - PAIN IN JAW [None]
